FAERS Safety Report 9477974 (Version 1)
Quarter: 2013Q3

REPORT INFORMATION
  Report Type: Spontaneous
  Country: US (occurrence: None)
  Receive Date: 20130826
  Receipt Date: 20130826
  Transmission Date: 20140515
  Serious: Yes (Hospitalization)
  Sender: FDA-Public Use
  Company Number: None

PATIENT
  Age: 52 Year
  Sex: Male
  Weight: 0 kg

DRUGS (2)
  1. TACROLIMUS [Suspect]
     Indication: RENAL TRANSPLANT
     Dosage: 3 TABS, PO, BID
     Route: 048
     Dates: start: 2009
  2. CELLCEPT [Suspect]
     Indication: RENAL TRANSPLANT
     Dosage: 1 TAB, BID, PO
     Route: 048
     Dates: start: 2009

REACTIONS (1)
  - Escherichia infection [None]
